FAERS Safety Report 7973999-4 (Version None)
Quarter: 2011Q4

REPORT INFORMATION
  Report Type: 
  Country: None (occurrence: None)
  Receive Date: 20111213
  Receipt Date: 20111208
  Transmission Date: 20120403
  Serious: Yes (Hospitalization)
  Sender: FDA-Public Use
  Company Number: US-GLAXOSMITHKLINE-A0957337A

PATIENT
  Age: 61 Year
  Sex: Female

DRUGS (2)
  1. LAMOTRIGINE [Suspect]
     Indication: AFFECTIVE DISORDER
     Dosage: 100MG PER DAY
     Route: 048
     Dates: start: 20100101
  2. MULTIPLE MEDICATIONS [Concomitant]

REACTIONS (4)
  - DRUG INEFFECTIVE [None]
  - AFFECT LABILITY [None]
  - ANXIETY [None]
  - DEPRESSION SUICIDAL [None]
